FAERS Safety Report 21266435 (Version 2)
Quarter: 2022Q3

REPORT INFORMATION
  Report Type: Spontaneous
  Country: JP (occurrence: JP)
  Receive Date: 20220829
  Receipt Date: 20220831
  Transmission Date: 20221027
  Serious: Yes (Other)
  Sender: FDA-Public Use
  Company Number: JP-MLMSERVICE-20220810-3726257-1

PATIENT
  Age: 56 Year
  Sex: Female

DRUGS (6)
  1. DOXORUBICIN HYDROCHLORIDE [Suspect]
     Active Substance: DOXORUBICIN HYDROCHLORIDE
     Indication: Osteosarcoma
     Dosage: 240 MG/M2, CYCLIC (20 MG/M2/DAY FOR 3 DAYS)
     Dates: start: 2018
  2. DOXORUBICIN HYDROCHLORIDE [Suspect]
     Active Substance: DOXORUBICIN HYDROCHLORIDE
     Indication: Breast cancer metastatic
  3. DOXORUBICIN HYDROCHLORIDE [Suspect]
     Active Substance: DOXORUBICIN HYDROCHLORIDE
     Indication: Metaplastic breast carcinoma
  4. CISPLATIN [Suspect]
     Active Substance: CISPLATIN
     Indication: Osteosarcoma
     Dosage: 400 MG/M2, CYCLIC (100 MG/M2 AT 21-DAY INTERVALS)
     Dates: start: 2018
  5. CISPLATIN [Suspect]
     Active Substance: CISPLATIN
     Indication: Breast cancer metastatic
  6. CISPLATIN [Suspect]
     Active Substance: CISPLATIN
     Indication: Metaplastic breast carcinoma

REACTIONS (3)
  - Atrioventricular block complete [Unknown]
  - Renal impairment [Unknown]
  - Off label use [Unknown]
